FAERS Safety Report 5146423-7 (Version None)
Quarter: 2006Q4

REPORT INFORMATION
  Report Type: 
  Country: None (occurrence: None)
  Receive Date: 20061102
  Receipt Date: 20061019
  Transmission Date: 20070319
  Serious: Yes (Life-Threatening, Hospitalization, Other)
  Sender: FDA-Public Use
  Company Number: 2006129305

PATIENT
  Age: 40 Year
  Sex: Female
  Weight: 49.8957 kg

DRUGS (13)
  1. NEURONTIN [Suspect]
     Indication: DIABETIC NEUROPATHY
     Dates: end: 20020901
  2. NEURONTIN [Suspect]
     Indication: FIBROMYALGIA
     Dates: end: 20020901
  3. LYRICA [Suspect]
     Indication: DIABETIC NEUROPATHY
     Dosage: 150 MG (75 MG, 2 IN 1 D)
     Dates: start: 20060101
  4. LYRICA [Suspect]
     Indication: FIBROMYALGIA
     Dosage: 150 MG (75 MG, 2 IN 1 D)
     Dates: start: 20060101
  5. ZYPREXA [Suspect]
     Dates: end: 20020901
  6. INSULIN (INSULIN) [Concomitant]
  7. ZYRTEC [Concomitant]
  8. CLARITIN [Concomitant]
  9. CYCLOSPORINE [Concomitant]
  10. RAPAMUNE [Concomitant]
  11. LOPRESSOR [Concomitant]
  12. AMBIEN [Concomitant]
  13. HYDROCHLOROTHIAZIDE [Concomitant]

REACTIONS (11)
  - BLOOD CALCIUM INCREASED [None]
  - BLOOD GLUCOSE INCREASED [None]
  - COMA [None]
  - DEHYDRATION [None]
  - DIABETIC NEUROPATHY [None]
  - FIBROMYALGIA [None]
  - HEADACHE [None]
  - PANCREAS TRANSPLANT [None]
  - PANCREATIC INJURY [None]
  - WEIGHT INCREASED [None]
  - WEIGHT LOSS POOR [None]
